FAERS Safety Report 8509264-6 (Version None)
Quarter: 2012Q3

REPORT INFORMATION
  Report Type: 
  Country: None (occurrence: None)
  Receive Date: 20120703
  Receipt Date: 20120626
  Transmission Date: 20120928
  Serious: Yes (Congenital Anomaly, Other)
  Sender: FDA-Public Use
  Company Number: GER/GER/12/0024820

PATIENT
  Sex: Male
  Weight: 2.8 kg

DRUGS (3)
  1. FOLIO (FOLIO) [Concomitant]
  2. IMPFATOFF GRIPPE (INFLUENZA VACCINE) [Concomitant]
  3. CITALOPRAM HYDROBROMIDE [Suspect]
     Indication: PRODUCT USED FOR UNKNOWN INDICATION
     Dosage: 20 MG, 1 D, TRANSPLACENTAL
     Route: 064

REACTIONS (11)
  - SPINE MALFORMATION [None]
  - MATERNAL DRUGS AFFECTING FOETUS [None]
  - VESICOURETERIC REFLUX [None]
  - ATRIAL SEPTAL DEFECT [None]
  - OESOPHAGEAL ATRESIA [None]
  - RECTOURETHRAL FISTULA [None]
  - POSTMATURE BABY [None]
  - ANAL ATRESIA [None]
  - HYDROCELE [None]
  - TRACHEO-OESOPHAGEAL FISTULA [None]
  - POLYHYDRAMNIOS [None]
